FAERS Safety Report 9324226 (Version 5)
Quarter: 2013Q3

REPORT INFORMATION
  Report Type: Spontaneous
  Country: FR (occurrence: FR)
  Receive Date: 20130603
  Receipt Date: 20130819
  Transmission Date: 20140515
  Serious: Yes (Death)
  Sender: FDA-Public Use
  Company Number: FR-GE HEALTHCARE MEDICAL DIAGNOSTICS-OMPQ-NO-1305S-0669

PATIENT
  Age: 86 Year
  Sex: Male

DRUGS (4)
  1. OMNIPAQUE [Suspect]
     Indication: HAEMATURIA
     Route: 042
     Dates: start: 20130521, end: 20130521
  2. OMNIPAQUE [Suspect]
     Indication: DIAGNOSTIC PROCEDURE
  3. LASILIX [Suspect]
     Dosage: DOSE NOT REPORTED
     Route: 065
     Dates: start: 20130521, end: 20130521
  4. SYMBICORT [Concomitant]
     Dosage: DOES NOT REPORTED
     Route: 065

REACTIONS (3)
  - Multi-organ failure [Fatal]
  - Cardio-respiratory arrest [Fatal]
  - Hypersensitivity [Fatal]
